FAERS Safety Report 8942615 (Version 1)
Quarter: 2012Q4

REPORT INFORMATION
  Report Type: 
  Country: BR (occurrence: BR)
  Receive Date: 20121204
  Receipt Date: 20121204
  Transmission Date: 20130627
  Serious: Yes (Hospitalization)
  Sender: FDA-Public Use
  Company Number: BR-009507513-2012SP035645

PATIENT
  Age: 55 None
  Sex: Male
  Weight: 83 kg

DRUGS (2)
  1. VICTRELIS [Suspect]
     Indication: HEPATITIS C
     Dosage: UNK UNK, Unknown
     Route: 048
     Dates: start: 20120303, end: 20121118
  2. INTERFERON (UNSPECIFIED) [Concomitant]
     Indication: HEPATITIS C
     Dosage: UNK, qw

REACTIONS (12)
  - Dizziness [Unknown]
  - Pyrexia [Recovering/Resolving]
  - Headache [Recovered/Resolved]
  - Inappropriate schedule of drug administration [Unknown]
  - Hypoaesthesia [Recovering/Resolving]
  - Platelet count decreased [Unknown]
  - Gastrointestinal infection [Recovering/Resolving]
  - Anaemia [Recovered/Resolved]
  - Toothache [Recovered/Resolved]
  - Myalgia [Not Recovered/Not Resolved]
  - Skin ulcer [Not Recovered/Not Resolved]
  - Pruritus [Not Recovered/Not Resolved]
